FAERS Safety Report 15247952 (Version 1)
Quarter: 2018Q3

REPORT INFORMATION
  Report Type: Spontaneous
  Country: US (occurrence: US)
  Receive Date: 20180714
  Receipt Date: 20180714
  Transmission Date: 20181010
  Serious: Yes (Life-Threatening, Disabling, Other)
  Sender: FDA-Public Use
  Company Number: None

PATIENT
  Age: 52 Year
  Sex: Male
  Weight: 128.25 kg

DRUGS (17)
  1. TIZANADRENE [Concomitant]
  2. FISH OIL [Concomitant]
     Active Substance: FISH OIL
  3. FLAXSEED [Concomitant]
     Active Substance: FLAX SEED
  4. DICLOFENAC [Concomitant]
     Active Substance: DICLOFENAC
  5. GUDUCHI WHITE KIDNEY BEAN EXTRACT [Concomitant]
  6. LOSARTAN. [Concomitant]
     Active Substance: LOSARTAN
  7. FENTANYL. [Concomitant]
     Active Substance: FENTANYL
  8. FORSKOLIN [Concomitant]
     Active Substance: COLFORSIN
  9. METFORMIN [Concomitant]
     Active Substance: METFORMIN HYDROCHLORIDE
  10. L ARGININE [Concomitant]
     Active Substance: ARGININE
  11. METHADONE [Suspect]
     Active Substance: METHADONE HYDROCHLORIDE
     Indication: SPINAL DISORDER
     Dosage: ?          QUANTITY:1 DF DOSAGE FORM;?
     Route: 048
     Dates: start: 20170630, end: 20170930
  12. BOSWELIA [Concomitant]
  13. ALOHA LIPOTIC ACID [Concomitant]
  14. COCONUT OUL DAILY 3 6 9 [Concomitant]
  15. NO DRUG NAME [Concomitant]
  16. CLONODINE [Concomitant]
     Active Substance: CLONIDINE
  17. MEN^S MULTIVITAMIN [Concomitant]

REACTIONS (4)
  - Apparent death [None]
  - Drug half-life increased [None]
  - Product label issue [None]
  - Poisoning [None]

NARRATIVE: CASE EVENT DATE: 20170930
